FAERS Safety Report 4881488-9 (Version None)
Quarter: 2005Q4

REPORT INFORMATION
  Report Type: 
  Country: None (occurrence: None)
  Receive Date: 20051201
  Receipt Date: 20050723
  Transmission Date: 20060501
  Serious: No
  Sender: FDA-Public Use
  Company Number: 2005PV000653

PATIENT
  Age: 41 Year
  Sex: Male
  Weight: 154.223 kg

DRUGS (4)
  1. BYETTA [Suspect]
     Indication: DIABETES MELLITUS NON-INSULIN-DEPENDENT
     Dosage: 5 MCG;BID;SC
     Route: 058
     Dates: start: 20050623
  2. SYNTHROID [Concomitant]
  3. PROTONIX [Concomitant]
  4. FLONASE [Concomitant]

REACTIONS (1)
  - CONSTIPATION [None]
